FAERS Safety Report 12601451 (Version 1)
Quarter: 2016Q3

REPORT INFORMATION
  Report Type: Spontaneous
  Country: BE (occurrence: BE)
  Receive Date: 20160728
  Receipt Date: 20160728
  Transmission Date: 20161109
  Serious: Yes (Death)
  Sender: FDA-Public Use
  Company Number: BE-CLINIGEN GROUP PLC/ CLINIGEN HEALTHCARE LTD-BE-CLGN-16-00143

PATIENT
  Age: 4 Month
  Sex: Female
  Weight: 5.8 kg

DRUGS (11)
  1. CMV SPECIFIC IMMUNOGLOBULINS [Concomitant]
     Indication: CYTOMEGALOVIRUS INFECTION
  2. GANCICLOVIR. [Concomitant]
     Active Substance: GANCICLOVIR
     Indication: CYTOMEGALOVIRUS INFECTION
  3. GANCICLOVIR. [Concomitant]
     Active Substance: GANCICLOVIR
  4. GANCICLOVIR. [Concomitant]
     Active Substance: GANCICLOVIR
  5. BUSULFAN. [Concomitant]
     Active Substance: BUSULFAN
     Indication: IMMUNOSUPPRESSANT DRUG THERAPY
     Route: 042
  6. ANTIBIOTICS [Concomitant]
     Active Substance: UNSPECIFIED INGREDIENT
     Indication: PYREXIA
  7. PHENOBARBITAL. [Concomitant]
     Active Substance: PHENOBARBITAL
     Indication: EPILEPSY
  8. FOSCARNET?SODIUM [Suspect]
     Active Substance: FOSCARNET SODIUM
     Indication: CYTOMEGALOVIRUS INFECTION
  9. PHENOBARBITAL. [Concomitant]
     Active Substance: PHENOBARBITAL
     Indication: PROPHYLAXIS
  10. CIDOFOVIR. [Concomitant]
     Active Substance: CIDOFOVIR
     Indication: CYTOMEGALOVIRUS INFECTION
  11. FLUDARABINE [Concomitant]
     Active Substance: FLUDARABINE PHOSPHATE
     Indication: IMMUNOSUPPRESSANT DRUG THERAPY

REACTIONS (8)
  - Sepsis [Fatal]
  - Drug resistance [Fatal]
  - Cardiac arrest [Fatal]
  - Cytopenia [Fatal]
  - Hepatic function abnormal [Fatal]
  - Respiratory arrest [Fatal]
  - Encephalitis cytomegalovirus [Fatal]
  - Respiratory disorder [Fatal]
